FAERS Safety Report 7341739-8 (Version None)
Quarter: 2011Q1

REPORT INFORMATION
  Report Type: 
  Country: None (occurrence: None)
  Receive Date: 20110309
  Receipt Date: 20110304
  Transmission Date: 20110831
  Serious: Yes (Hospitalization)
  Sender: FDA-Public Use
  Company Number: US-PFIZER INC-2010171759

PATIENT
  Weight: 65 kg

DRUGS (1)
  1. SOLU-MEDROL [Suspect]
     Dosage: 120 MG, UNK
     Dates: start: 20101110

REACTIONS (2)
  - PRURITUS [None]
  - DYSPNOEA [None]
